FAERS Safety Report 8727778 (Version 2)
Quarter: 2012Q4

REPORT INFORMATION
  Report Type: Spontaneous
  Country: US (occurrence: None)
  Receive Date: 20120731
  Receipt Date: 20120820
  Transmission Date: 20130627
  Serious: Yes (Hospitalization)
  Sender: FDA-Public Use
  Company Number: UTC-021135

PATIENT
  Age: 63 Year
  Sex: Male
  Weight: 69.1 kg

DRUGS (6)
  1. TYVASO [Suspect]
     Indication: PRIMARY PULMONARY HYPERTENSION
     Dosage: 18-54 MCG (4 IN 1 D), INHALATION
     Route: 055
     Dates: start: 20110713
  2. COUMADIN [Concomitant]
  3. REVATIO [Concomitant]
  4. TRACLEER [Concomitant]
  5. MOTRIN [Suspect]
  6. DIGOXIN [Concomitant]

REACTIONS (5)
  - Red blood cell count decreased [None]
  - Haemorrhage [None]
  - Cough [None]
  - Feeling jittery [None]
  - Insomnia [None]
